FAERS Safety Report 13296454 (Version 1)
Quarter: 2017Q1

REPORT INFORMATION
  Report Type: Spontaneous
  Country: US (occurrence: US)
  Receive Date: 20170305
  Receipt Date: 20170305
  Transmission Date: 20170428
  Serious: No
  Sender: FDA-Public Use
  Company Number: US-ELI_LILLY_AND_COMPANY-US201702008366

PATIENT
  Age: 17 Year
  Sex: Female

DRUGS (1)
  1. TALTZ [Suspect]
     Active Substance: IXEKIZUMAB
     Indication: PSORIASIS
     Dosage: 160 MG, LOADING DOSE
     Route: 065
     Dates: start: 20170207

REACTIONS (3)
  - Neck pain [Unknown]
  - Injection site swelling [Unknown]
  - Neck mass [Unknown]

NARRATIVE: CASE EVENT DATE: 20170207
